FAERS Safety Report 4864553-1 (Version None)
Quarter: 2005Q4

REPORT INFORMATION
  Report Type: 
  Country: None (occurrence: None)
  Receive Date: 20051222
  Receipt Date: 20051214
  Transmission Date: 20060501
  Serious: Yes (Other)
  Sender: FDA-Public Use
  Company Number: PHBS2005IT18518

PATIENT
  Age: 50 Year
  Sex: Female

DRUGS (3)
  1. ENTACAPONE [Suspect]
     Indication: PARKINSON'S DISEASE
     Dosage: 800 MG/D
     Route: 065
  2. PRAMIPEXOLE DIHYDROCHLORIDE [Concomitant]
     Dosage: 2 MG/D
     Route: 065
  3. CARBIDOPA AND LEVODOPA [Concomitant]
     Dosage: 500/125 MG/D
     Route: 065

REACTIONS (4)
  - ALANINE AMINOTRANSFERASE INCREASED [None]
  - ASPARTATE AMINOTRANSFERASE INCREASED [None]
  - GAMMA-GLUTAMYLTRANSFERASE INCREASED [None]
  - HEPATIC ENZYME ABNORMAL [None]
